FAERS Safety Report 11305982 (Version 1)
Quarter: 2015Q3

REPORT INFORMATION
  Report Type: Spontaneous
  Country: US (occurrence: US)
  Receive Date: 20150723
  Receipt Date: 20150723
  Transmission Date: 20151125
  Serious: Yes (Other)
  Sender: FDA-Public Use
  Company Number: US-PROCTER_AND_GAMBLE-CIO15043808

PATIENT
  Sex: Female

DRUGS (2)
  1. CREST ANTI CAVITY REGULAR [Suspect]
     Active Substance: SODIUM FLUORIDE
     Dosage: 1 APPLIC, UNKNOWN FREQUENCY
     Route: 002
  2. DENTAL FLOSS [Concomitant]
     Dosage: UNKNOWN

REACTIONS (2)
  - Tooth disorder [Unknown]
  - Dental caries [Not Recovered/Not Resolved]
